FAERS Safety Report 11308810 (Version 2)
Quarter: 2017Q1

REPORT INFORMATION
  Report Type: Spontaneous
  Country: FR (occurrence: FR)
  Receive Date: 20150724
  Receipt Date: 20170106
  Transmission Date: 20170428
  Serious: Yes (Life-Threatening, Hospitalization, Other)
  Sender: FDA-Public Use
  Company Number: FR-ELI_LILLY_AND_COMPANY-FR201507005673

PATIENT
  Age: 51 Year
  Sex: Female

DRUGS (30)
  1. ZARZIO [Concomitant]
     Active Substance: FILGRASTIM
  2. OXYCONTIN [Suspect]
     Active Substance: OXYCODONE HYDROCHLORIDE
     Indication: PRODUCT USED FOR UNKNOWN INDICATION
     Dosage: 10 MG, UNKNOWN
     Route: 065
     Dates: start: 20150416, end: 20150430
  3. CALCIDOSE                          /00944201/ [Concomitant]
     Active Substance: CALCIUM CARBONATE\CHOLECALCIFEROL
  4. DUROGESIC [Concomitant]
     Active Substance: FENTANYL
  5. VOLTAREN [Suspect]
     Active Substance: DICLOFENAC SODIUM
     Indication: PRODUCT USED FOR UNKNOWN INDICATION
     Dosage: UNK
     Route: 048
     Dates: start: 20150331, end: 20150414
  6. ENDOXAN                            /00021101/ [Suspect]
     Active Substance: CYCLOPHOSPHAMIDE
     Indication: SYSTEMIC LUPUS ERYTHEMATOSUS
     Dosage: 1 DF, MONTHLY (1/M)
     Route: 065
     Dates: start: 20150224, end: 20150421
  7. ENDOXAN                            /00021101/ [Suspect]
     Active Substance: CYCLOPHOSPHAMIDE
     Indication: POSTERIOR REVERSIBLE ENCEPHALOPATHY SYNDROME
  8. FOSAVANCE [Suspect]
     Active Substance: ALENDRONATE SODIUM\CHOLECALCIFEROL
     Indication: PRODUCT USED FOR UNKNOWN INDICATION
     Dosage: 70 MG, UNKNOWN
     Route: 065
     Dates: start: 20150224, end: 20150425
  9. VITAMIN B12 [Concomitant]
     Active Substance: CYANOCOBALAMIN
  10. PERINDOPRIL [Concomitant]
     Active Substance: PERINDOPRIL
  11. CYMBALTA [Suspect]
     Active Substance: DULOXETINE HYDROCHLORIDE
     Indication: PRODUCT USED FOR UNKNOWN INDICATION
     Dosage: UNK
     Route: 048
     Dates: start: 20150413, end: 20150430
  12. THERALENE [Suspect]
     Active Substance: TRIMEPRAZINE
     Indication: PRODUCT USED FOR UNKNOWN INDICATION
     Dosage: 40 MG, UNK
     Route: 065
     Dates: start: 20150316
  13. NEXIUM [Suspect]
     Active Substance: ESOMEPRAZOLE MAGNESIUM
     Indication: PRODUCT USED FOR UNKNOWN INDICATION
     Dosage: UNK UNK, UNKNOWN
     Route: 065
     Dates: start: 20150128, end: 20150424
  14. LYRICA [Suspect]
     Active Substance: PREGABALIN
     Indication: PRODUCT USED FOR UNKNOWN INDICATION
     Dosage: UNK UNK, UNKNOWN
     Route: 065
     Dates: start: 20150301, end: 20150425
  15. NEFOPAM MYLAN [Suspect]
     Active Substance: NEFOPAM
     Indication: PRODUCT USED FOR UNKNOWN INDICATION
     Dosage: UNK UNK, UNKNOWN
     Route: 065
     Dates: start: 20150216, end: 20150424
  16. OXYNORM [Suspect]
     Active Substance: OXYCODONE HYDROCHLORIDE
     Indication: PRODUCT USED FOR UNKNOWN INDICATION
     Dosage: UNK UNK, UNKNOWN
     Route: 065
     Dates: start: 20150212, end: 20150430
  17. LEVOTHYROXINE. [Concomitant]
     Active Substance: LEVOTHYROXINE
  18. HYPERIUM [Concomitant]
     Active Substance: RILMENIDINE PHOSPHATE
  19. LEVEMIR [Concomitant]
     Active Substance: INSULIN DETEMIR
  20. MOVICOL [Concomitant]
     Active Substance: POLYETHYLENE GLYCOL 3350\POTASSIUM CHLORIDE\SODIUM BICARBONATE\SODIUM CHLORIDE
  21. DOLIPRANE [Concomitant]
     Active Substance: ACETAMINOPHEN
     Dosage: UNK
     Dates: start: 20150326, end: 20150425
  22. CORTANCYL [Concomitant]
     Active Substance: PREDNISONE
  23. VITAMIN B9 [Concomitant]
  24. VERSATIS [Concomitant]
     Active Substance: LIDOCAINE
  25. NOVORAPID [Concomitant]
     Active Substance: INSULIN ASPART
  26. LEVEMIR [Concomitant]
     Active Substance: INSULIN DETEMIR
  27. BACTRIM [Suspect]
     Active Substance: SULFAMETHOXAZOLE\TRIMETHOPRIM
     Indication: PRODUCT USED FOR UNKNOWN INDICATION
     Dosage: UNK
     Dates: start: 20150228, end: 20150425
  28. ATARAX [Suspect]
     Active Substance: HYDROXYZINE HYDROCHLORIDE
     Indication: PRODUCT USED FOR UNKNOWN INDICATION
     Dosage: UNK UNK, UNKNOWN
     Route: 065
     Dates: start: 20150214, end: 20150425
  29. KEPPRA [Suspect]
     Active Substance: LEVETIRACETAM
     Indication: PRODUCT USED FOR UNKNOWN INDICATION
     Dosage: UNK
     Route: 065
     Dates: start: 20150211, end: 20150302
  30. LOXEN                              /00639802/ [Concomitant]
     Active Substance: NICARDIPINE
     Dosage: UNK
     Dates: start: 20150223, end: 20150426

REACTIONS (12)
  - Stevens-Johnson syndrome [Recovered/Resolved]
  - Dermatophytosis [Recovered/Resolved]
  - Respiratory depression [Unknown]
  - Gastrointestinal haemorrhage [Unknown]
  - Bicytopenia [Unknown]
  - Lichenoid keratosis [Unknown]
  - Tachycardia [Unknown]
  - Cytomegalovirus oesophagitis [Recovered/Resolved]
  - Pigmentation disorder [Unknown]
  - Pneumonia cytomegaloviral [Recovered/Resolved]
  - Pneumonia pneumococcal [Unknown]
  - Dyspnoea [Unknown]

NARRATIVE: CASE EVENT DATE: 20150421
